FAERS Safety Report 4262934-0 (Version None)
Quarter: 2004Q1

REPORT INFORMATION
  Report Type: 
  Country: None (occurrence: None)
  Receive Date: 20040102
  Receipt Date: 20040102
  Transmission Date: 20041129
  Serious: No
  Sender: FDA-Public Use
  Company Number: None

PATIENT
  Age: 33 Year
  Sex: Male
  Weight: 81.6475 kg

DRUGS (5)
  1. TENOFOVIR 300 MG GILEAD [Suspect]
     Indication: HIV INFECTION
     Dosage: 1 QD ORAL
     Route: 048
     Dates: start: 20021101, end: 20031205
  2. TRIZIVIR [Concomitant]
  3. VIRAMUNE [Concomitant]
  4. NIACIN [Concomitant]
  5. TRICOR [Concomitant]

REACTIONS (2)
  - AZOTAEMIA [None]
  - RENAL TUBULAR ACIDOSIS [None]
